FAERS Safety Report 9681298 (Version 5)
Quarter: 2014Q1

REPORT INFORMATION
  Report Type: Report from Study
  Country: JP (occurrence: JP)
  Receive Date: 20131111
  Receipt Date: 20140310
  Transmission Date: 20141002
  Serious: Yes (Death, Hospitalization, Other)
  Sender: FDA-Public Use
  Company Number: JP-NAPPMUNDI-GBR-2013-0016289

PATIENT
  Age: 75 Year
  Sex: Female

DRUGS (9)
  1. OXYCODONE HYDROCHLORIDE [Suspect]
     Indication: CANCER PAIN
     Dosage: 0.3 MG/HR, DAILY
     Route: 042
     Dates: start: 20130928, end: 20130929
  2. OXYCODONE HYDROCHLORIDE [Suspect]
     Dosage: 0.2 MG, 4 DAY
     Route: 042
     Dates: start: 20130927, end: 20130928
  3. OXYCODONE HYDROCHLORIDE [Suspect]
     Dosage: 0.2 MG, SINGLE
     Route: 042
     Dates: start: 20130923, end: 20130923
  4. OXYCODONE HYDROCHLORIDE [Suspect]
     Dosage: 0.2 MG/HR, DAILY
     Route: 042
     Dates: start: 20130917, end: 20130927
  5. OMEPRAL                            /00661201/ [Concomitant]
     Dosage: 20 MG, DAILY
     Dates: start: 20130917, end: 20130929
  6. SOLDEM [Concomitant]
     Dosage: 500 ML, DAILY
     Dates: start: 20130917, end: 20130929
  7. CARBAZOCHROME SODIUM SULFONATE [Concomitant]
     Dosage: 100 MG, DAILY
     Dates: start: 20130918, end: 20130929
  8. TRANEXAMIC ACID [Concomitant]
     Dosage: 1000 MG, DAILY
     Dates: start: 20130918, end: 20130929
  9. VITAMEDIN S [Concomitant]
     Dosage: 1 DF, DAILY
     Dates: start: 20130918, end: 20130929

REACTIONS (5)
  - Malignant neoplasm progression [Fatal]
  - Delirium [Not Recovered/Not Resolved]
  - Blood glucose decreased [Unknown]
  - Hepatic function abnormal [Unknown]
  - Insomnia [Recovering/Resolving]
